FAERS Safety Report 18398370 (Version 1)
Quarter: 2020Q4

REPORT INFORMATION
  Report Type: Spontaneous
  Country: US (occurrence: US)
  Receive Date: 20201019
  Receipt Date: 20201019
  Transmission Date: 20210114
  Serious: Yes (Life-Threatening, Hospitalization)
  Sender: FDA-Public Use
  Company Number: None

PATIENT
  Age: 57 Year
  Sex: Male
  Weight: 98 kg

DRUGS (1)
  1. NITROGLYCERIN (NITROGLYCERIN 0.4MG TAB, SUBLINGUAL) [Suspect]
     Active Substance: NITROGLYCERIN
     Indication: ANGINA PECTORIS
     Route: 060
     Dates: start: 20200713, end: 20200713

REACTIONS (3)
  - Cardiac arrest [None]
  - Hyperhidrosis [None]
  - Dizziness [None]

NARRATIVE: CASE EVENT DATE: 20200713
